FAERS Safety Report 8152507-1 (Version None)
Quarter: 2012Q1

REPORT INFORMATION
  Report Type: 
  Country: None (occurrence: None)
  Receive Date: 20120221
  Receipt Date: 20120209
  Transmission Date: 20120608
  Serious: Yes (Hospitalization, Disabling, Other)
  Sender: FDA-Public Use
  Company Number: US-CELGENEUS-163-21880-11100894

PATIENT
  Sex: Female

DRUGS (2)
  1. REVLIMID [Suspect]
     Dosage: 5 MILLIGRAM
     Route: 048
     Dates: start: 20110310
  2. WHOLE BLOOD [Concomitant]
     Indication: TRANSFUSION
     Route: 041

REACTIONS (3)
  - COGNITIVE DISORDER [None]
  - SUICIDE ATTEMPT [None]
  - HYPOTHYROIDISM [None]
